FAERS Safety Report 10191214 (Version 6)
Quarter: 2014Q4

REPORT INFORMATION
  Report Type: Report from Study
  Country: JP (occurrence: JP)
  Receive Date: 20140523
  Receipt Date: 20141125
  Transmission Date: 20150528
  Serious: Yes (Death)
  Sender: FDA-Public Use
  Company Number: JP-PFIZER INC-2014097364

PATIENT
  Age: 18 Year
  Sex: Female
  Weight: 41 kg

DRUGS (13)
  1. XALKORI [Suspect]
     Active Substance: CRIZOTINIB
     Indication: NON-SMALL CELL LUNG CANCER
     Dosage: 250 MG, 2X/DAY (500 MG/DAY)
     Route: 048
     Dates: start: 20131220, end: 20140108
  2. LOXONIN [Concomitant]
     Active Substance: LOXOPROFEN SODIUM
     Dosage: 60 MG, 3X/DAY
     Route: 048
     Dates: start: 20140304, end: 20140330
  3. XALKORI [Suspect]
     Active Substance: CRIZOTINIB
     Dosage: 200 MG, 2X/DAY (400 MG/DAY)
     Route: 048
     Dates: start: 20140123, end: 20140330
  4. VOLTAREN [Concomitant]
     Active Substance: DICLOFENAC SODIUM
     Dosage: 50 MG, AS NEEDED
     Dates: start: 20140306, end: 20140327
  5. DECADRON [Suspect]
     Active Substance: DEXAMETHASONE
     Dosage: 2 MG, 1X/DAY
     Route: 048
     Dates: end: 20140104
  6. DECADRON [Suspect]
     Active Substance: DEXAMETHASONE
     Dosage: 1 MG, 1X/DAY
     Route: 048
     Dates: start: 20140105, end: 20140130
  7. OXINORM [Concomitant]
     Active Substance: OXYCODONE HYDROCHLORIDE
     Dosage: 2.5 MG, AS NEEDED
     Route: 048
     Dates: start: 20140310, end: 20140331
  8. FUROSEMIDE. [Concomitant]
     Active Substance: FUROSEMIDE
     Dosage: 20 MG, 1X/DAY
     Route: 048
     Dates: start: 20140316, end: 20140331
  9. DECADRON [Suspect]
     Active Substance: DEXAMETHASONE
     Dosage: 8 MG, 1X/DAY
     Route: 048
     Dates: start: 20140131, end: 20140212
  10. PARIET [Concomitant]
     Active Substance: RABEPRAZOLE SODIUM
     Dosage: 10 MG, 1X/DAY
     Route: 048
     Dates: start: 20131220, end: 20140330
  11. SENNARIDE [Concomitant]
     Active Substance: SENNOSIDES A AND B
     Dosage: 24 MG, 1X/DAY
     Route: 048
     Dates: start: 20131220, end: 20140330
  12. DECADRON [Suspect]
     Active Substance: DEXAMETHASONE
     Dosage: 5 MG, 1X/DAY
     Route: 048
     Dates: start: 20140213, end: 20140330
  13. FENTOS TAPE [Concomitant]
     Active Substance: FENTANYL
     Dosage: 1 MG, 1X/DAY
     Route: 062
     Dates: start: 20140312, end: 20140331

REACTIONS (3)
  - Non-small cell lung cancer [Fatal]
  - Disease progression [Fatal]
  - Pneumocystis jirovecii pneumonia [Fatal]

NARRATIVE: CASE EVENT DATE: 20140330
